FAERS Safety Report 19147623 (Version 1)
Quarter: 2021Q2

REPORT INFORMATION
  Report Type: Spontaneous
  Country: US (occurrence: US)
  Receive Date: 20210416
  Receipt Date: 20210416
  Transmission Date: 20210717
  Serious: No
  Sender: FDA-Public Use
  Company Number: US-SEBELA IRELAND LIMITED-2020SEB00053

PATIENT
  Sex: Female

DRUGS (13)
  1. ACTEMRA [Concomitant]
     Active Substance: TOCILIZUMAB
  2. VITAMIN B COMPLEX [Concomitant]
     Active Substance: CYANOCOBALAMIN\DEXPANTHENOL\NIACINAMIDE\PYRIDOXINE HYDROCHLORIDE\RIBOFLAVIN 5^-PHOSPHATE SODIUM\THIAMINE HYDROCHLORIDE\VITAMIN B COMPLEX
  3. EMERGEN?C [Concomitant]
     Active Substance: VITAMINS
  4. FLUTICASONE PROPIONATE. [Concomitant]
     Active Substance: FLUTICASONE PROPIONATE
  5. MONTELUKAST [Concomitant]
     Active Substance: MONTELUKAST SODIUM
  6. EXCEDRIN MIGRAINE [Concomitant]
     Active Substance: ACETAMINOPHEN\ASPIRIN\CAFFEINE
  7. TUMS [Concomitant]
     Active Substance: CALCIUM CARBONATE
  8. ZYRTEC [Concomitant]
     Active Substance: CETIRIZINE HYDROCHLORIDE
  9. RITUXAN [Concomitant]
     Active Substance: RITUXIMAB
  10. VITAMIN D3 [Concomitant]
     Active Substance: CHOLECALCIFEROL
  11. ESCITALOPRAM [Concomitant]
     Active Substance: ESCITALOPRAM OXALATE
  12. IMURAN [Suspect]
     Active Substance: AZATHIOPRINE
     Dosage: UNK
  13. PREDNISONE. [Concomitant]
     Active Substance: PREDNISONE

REACTIONS (1)
  - Infection [Unknown]
